FAERS Safety Report 9240826 (Version 1)
Quarter: 2013Q1

REPORT INFORMATION
  Report Type: Spontaneous
  Country: US (occurrence: None)
  Receive Date: 20121120
  Receipt Date: 20121120
  Transmission Date: 20140127
  Serious: No
  Sender: FDA-Public Use
  Company Number: 1000037469

PATIENT
  Age: 39 Year
  Sex: Female

DRUGS (4)
  1. VIIBRYD [Suspect]
     Indication: DEPRESSION
     Route: 048
     Dates: start: 201205, end: 2012
  2. VIIBRYD [Suspect]
     Indication: ANXIETY
     Route: 048
     Dates: start: 201205, end: 2012
  3. ZYRTEC (CETIRIZINE HYDROCHLORIDE) (CETIRIZINE HYDROCHLORIDE) [Concomitant]
  4. WELLBUTRIN (BUPROPION) [Concomitant]

REACTIONS (6)
  - Sleep terror [None]
  - Sleep paralysis [None]
  - Hallucination [None]
  - Paraesthesia [None]
  - Speech disorder [None]
  - Weight decreased [None]
